FAERS Safety Report 12104191 (Version 1)
Quarter: 2016Q1

REPORT INFORMATION
  Report Type: Spontaneous
  Country: FR (occurrence: FR)
  Receive Date: 20160223
  Receipt Date: 20160223
  Transmission Date: 20160526
  Serious: Yes (Hospitalization)
  Sender: FDA-Public Use
  Company Number: FR-AUROBINDO-AUR-APL-2016-01828

PATIENT
  Age: 44 Year
  Sex: Male

DRUGS (12)
  1. VFEND [Suspect]
     Active Substance: VORICONAZOLE
     Indication: ASPERGILLUS INFECTION
     Dosage: 4 MG/KG, UNK
     Route: 065
     Dates: start: 20160108, end: 20160113
  2. DAUNORUBICINE [Concomitant]
     Active Substance: DAUNORUBICIN
     Indication: PRODUCT USED FOR UNKNOWN INDICATION
     Route: 065
  3. TIORFAN [Concomitant]
     Active Substance: RACECADOTRIL
     Indication: AGRANULOCYTOSIS
     Route: 065
  4. FLAGYL [Concomitant]
     Active Substance: METRONIDAZOLE\METRONIDAZOLE HYDROCHLORIDE
     Indication: DIARRHOEA
     Dosage: 500 MG, DAILY
     Route: 048
  5. FLUCONAZOLE CAPSULE, HARD 200MG [Suspect]
     Active Substance: FLUCONAZOLE
     Indication: HODGKIN^S DISEASE
     Dosage: 400 MG, DAILY
     Route: 048
     Dates: start: 20151219, end: 20160109
  6. ZOVIRAX [Concomitant]
     Active Substance: ACYCLOVIR
     Indication: AGRANULOCYTOSIS
     Dosage: 1500 MG, DAILY
     Route: 042
  7. CYTARABINE. [Concomitant]
     Active Substance: CYTARABINE
     Indication: PRODUCT USED FOR UNKNOWN INDICATION
  8. ZOVIRAX [Concomitant]
     Active Substance: ACYCLOVIR
     Indication: DIARRHOEA
  9. PREVISCAN                          /00261401/ [Concomitant]
     Active Substance: PENTOXIFYLLINE
     Indication: PRODUCT USED FOR UNKNOWN INDICATION
     Route: 065
  10. PIPERACILLIN AND TAZOBACTAM [Concomitant]
     Active Substance: PIPERACILLIN SODIUM\TAZOBACTAM SODIUM
     Indication: PYREXIA
  11. BACTRIM [Concomitant]
     Active Substance: SULFAMETHOXAZOLE\TRIMETHOPRIM
     Indication: LUNG INFECTION
     Route: 042
  12. TIORFAN [Concomitant]
     Active Substance: RACECADOTRIL
     Indication: DIARRHOEA

REACTIONS (1)
  - Lung infection [Not Recovered/Not Resolved]

NARRATIVE: CASE EVENT DATE: 201601
